FAERS Safety Report 10228736 (Version 2)
Quarter: 2014Q4

REPORT INFORMATION
  Report Type: Spontaneous
  Country: US (occurrence: US)
  Receive Date: 20140610
  Receipt Date: 20141103
  Transmission Date: 20150528
  Serious: Yes (Hospitalization, Other)
  Sender: FDA-Public Use
  Company Number: US-VERTEX PHARMACEUTICALS (CANADA)-2014-002636

PATIENT
  Age: 0 Day
  Sex: Female
  Weight: 7 kg

DRUGS (1)
  1. KALYDECO [Suspect]
     Active Substance: IVACAFTOR
     Indication: CYSTIC FIBROSIS
     Dosage: 150 MG, BID
     Route: 064
     Dates: start: 20120724, end: 20130718

REACTIONS (5)
  - Maternal drugs affecting foetus [None]
  - Respiratory distress [Unknown]
  - Intraventricular haemorrhage [Unknown]
  - Retinopathy [Unknown]
  - Premature baby [None]

NARRATIVE: CASE EVENT DATE: 20130718
